FAERS Safety Report 8572538-7 (Version None)
Quarter: 2012Q3

REPORT INFORMATION
  Report Type: 
  Country: None (occurrence: None)
  Receive Date: 20120806
  Receipt Date: 20120726
  Transmission Date: 20120928
  Serious: Yes (Hospitalization)
  Sender: FDA-Public Use
  Company Number: FR-ASTRAZENECA-2012SE53506

PATIENT
  Sex: Male

DRUGS (5)
  1. IKOREL [Suspect]
     Route: 048
     Dates: end: 20120411
  2. ACETAMINOPHEN AND TRAMADOL HCL [Concomitant]
     Dosage: AS REQUIRED.
     Route: 048
  3. AIROMIR AUTOHALER [Concomitant]
     Indication: CHRONIC OBSTRUCTIVE PULMONARY DISEASE
     Route: 055
  4. ATACAND [Suspect]
     Indication: HYPERTENSION
     Route: 048
     Dates: end: 20120411
  5. PLAVIX [Concomitant]
     Indication: THROMBOSIS PROPHYLAXIS
     Route: 048

REACTIONS (4)
  - CHEST PAIN [None]
  - HYPOTENSION [None]
  - CARDIAC FAILURE [None]
  - DYSPNOEA [None]
